FAERS Safety Report 15089005 (Version 1)
Quarter: 2018Q2

REPORT INFORMATION
  Report Type: Spontaneous
  Country: US (occurrence: US)
  Receive Date: 20180629
  Receipt Date: 20180629
  Transmission Date: 20180711
  Serious: No
  Sender: FDA-Public Use
  Company Number: US-SA-2018SA165473

PATIENT
  Sex: Male

DRUGS (1)
  1. DUPIXENT [Suspect]
     Active Substance: DUPILUMAB
     Indication: DERMATITIS ATOPIC
     Dosage: 300 MG, QOW
     Dates: start: 20170531

REACTIONS (8)
  - Eye pruritus [Unknown]
  - Ocular hyperaemia [Unknown]
  - Eye disorder [Unknown]
  - Lacrimation increased [Unknown]
  - Vision blurred [Unknown]
  - Eyelid irritation [Unknown]
  - Blood pressure decreased [Recovering/Resolving]
  - Eye discharge [Unknown]
